FAERS Safety Report 6027325-0 (Version None)
Quarter: 2009Q1

REPORT INFORMATION
  Report Type: 
  Country: None (occurrence: None)
  Receive Date: 20090105
  Receipt Date: 20081229
  Transmission Date: 20090719
  Serious: Yes (Other)
  Sender: FDA-Public Use
  Company Number: B0539976A

PATIENT
  Age: 66 Year
  Sex: Male

DRUGS (3)
  1. ZEFIX [Suspect]
     Indication: DRUG USE FOR UNKNOWN INDICATION
     Dosage: 100MG PER DAY
     Route: 048
     Dates: start: 20070201
  2. HEPSERA [Suspect]
     Indication: HEPATITIS B
     Dosage: 10MG PER DAY
     Route: 048
     Dates: start: 20070410
  3. ZYLORIC [Suspect]
     Dosage: 100MG PER DAY
     Route: 048
     Dates: start: 20070201

REACTIONS (3)
  - ALANINE AMINOTRANSFERASE INCREASED [None]
  - BLOOD IMMUNOGLOBULIN E INCREASED [None]
  - URTICARIA [None]
